FAERS Safety Report 9353124 (Version 1)
Quarter: 2013Q2

REPORT INFORMATION
  Report Type: Spontaneous
  Country: US (occurrence: None)
  Receive Date: 20130612
  Receipt Date: 20130612
  Transmission Date: 20140414
  Serious: Yes (Other)
  Sender: FDA-Public Use
  Company Number: HRA-MET20130019

PATIENT
  Sex: 0

DRUGS (1)
  1. METYRAPONE [Suspect]
     Indication: CUSHING^S SYNDROME
     Route: 048

REACTIONS (1)
  - Hypercorticoidism [None]
